FAERS Safety Report 6471603-8 (Version None)
Quarter: 2009Q4

REPORT INFORMATION
  Report Type: 
  Country: None (occurrence: None)
  Receive Date: 20091203
  Receipt Date: 20080506
  Transmission Date: 20100525
  Serious: Yes (Other)
  Sender: FDA-Public Use
  Company Number: US-ELI_LILLY_AND_COMPANY-US200803006873

PATIENT
  Sex: Female
  Weight: 68.027 kg

DRUGS (6)
  1. FORTEO [Suspect]
     Indication: OSTEOPOROSIS
     Dosage: 20 UG, DAILY (1/D)
     Dates: start: 20080115, end: 20080101
  2. VICODIN [Concomitant]
  3. NASAL SPRAY [Concomitant]
     Route: 045
  4. GLUCOSAMINE [Concomitant]
  5. CALCIUM [Concomitant]
  6. ASPIRIN [Concomitant]

REACTIONS (2)
  - BREAST CANCER [None]
  - BREAST HAEMATOMA [None]
